FAERS Safety Report 12592376 (Version 2)
Quarter: 2016Q3

REPORT INFORMATION
  Report Type: Report from Study
  Country: DE (occurrence: DE)
  Receive Date: 20160726
  Receipt Date: 20160802
  Transmission Date: 20161109
  Serious: Yes (Other)
  Sender: FDA-Public Use
  Company Number: DE-ROCHE-1802090

PATIENT
  Sex: Female

DRUGS (2)
  1. SOMATROPIN [Suspect]
     Active Substance: SOMATROPIN
     Indication: FAILURE TO THRIVE
     Dosage: TOTAL DOSE: 4.2 MG/WEEK
     Route: 058
     Dates: start: 20150423
  2. SOMATROPIN [Suspect]
     Active Substance: SOMATROPIN
     Indication: TURNER^S SYNDROME

REACTIONS (2)
  - Adenoidectomy [Recovered/Resolved]
  - Paracentesis [Recovered/Resolved]

NARRATIVE: CASE EVENT DATE: 201511
